FAERS Safety Report 7633869 (Version 3)
Quarter: 2013Q1

REPORT INFORMATION
  Report Type: Spontaneous
  Country: US (occurrence: US)
  Receive Date: 20101019
  Receipt Date: 20130104
  Transmission Date: 20140127
  Serious: Yes (Hospitalization, Other)
  Sender: FDA-Public Use
  Company Number: US-US-EMD SERONO, INC.-7022072

PATIENT
  Sex: Female

DRUGS (2)
  1. REBIF [Suspect]
     Indication: SECONDARY PROGRESSIVE MULTIPLE SCLEROSIS
     Route: 058
     Dates: start: 20081224
  2. REBIF [Suspect]
     Route: 058

REACTIONS (13)
  - Staphylococcal infection [Recovering/Resolving]
  - Haematoma [Recovering/Resolving]
  - Drug hypersensitivity [Recovering/Resolving]
  - Localised infection [Recovering/Resolving]
  - Arthropod bite [Recovering/Resolving]
  - Local swelling [Recovering/Resolving]
  - Erythema [Recovering/Resolving]
  - Pyrexia [Not Recovered/Not Resolved]
  - Chills [Unknown]
  - Myalgia [Unknown]
  - Injection site erythema [Recovering/Resolving]
  - Injection site warmth [Recovering/Resolving]
  - Injection site swelling [Recovering/Resolving]
